FAERS Safety Report 8600582-X (Version None)
Quarter: 2012Q3

REPORT INFORMATION
  Report Type: 
  Country: None (occurrence: None)
  Receive Date: 20120817
  Receipt Date: 20120809
  Transmission Date: 20120928
  Serious: Yes (Hospitalization)
  Sender: FDA-Public Use
  Company Number: US-BAYER-2012-082432

PATIENT
  Age: 53 Year
  Sex: Female
  Weight: 74.83 kg

DRUGS (5)
  1. YAZ [Suspect]
  2. FLONASE [Concomitant]
     Dosage: 50 MCG/24HR, UNK
     Route: 045
  3. PREVACID [Concomitant]
     Indication: ABDOMINAL PAIN UPPER
     Dosage: 30 MG, DAILY
     Route: 048
  4. PREVACID [Concomitant]
     Indication: DYSPEPSIA
  5. ANUSOL-HC [HYDROCORTISONE ACETATE] [Concomitant]
     Indication: HAEMORRHOIDS
     Dosage: 25 MG, PRN

REACTIONS (2)
  - DEEP VEIN THROMBOSIS [None]
  - PULMONARY EMBOLISM [None]
